FAERS Safety Report 16898286 (Version 4)
Quarter: 2025Q1

REPORT INFORMATION
  Report Type: Report from Study
  Country: ES (occurrence: ES)
  Receive Date: 20191009
  Receipt Date: 20250321
  Transmission Date: 20250408
  Serious: Yes (Other)
  Sender: AUROBINDO
  Company Number: None

PATIENT
  Age: 40 Year
  Sex: Male

DRUGS (6)
  1. TENOFOVIR DISOPROXIL [Suspect]
     Active Substance: TENOFOVIR DISOPROXIL
     Indication: HIV-2 infection
     Route: 065
  2. EMTRICITABINE [Suspect]
     Active Substance: EMTRICITABINE
     Indication: HIV-2 infection
     Route: 065
  3. RALTEGRAVIR POTASSIUM [Suspect]
     Active Substance: RALTEGRAVIR POTASSIUM
     Indication: HIV-2 infection
     Route: 065
  4. DARUNAVIR [Suspect]
     Active Substance: DARUNAVIR
     Indication: HIV-2 infection
     Dosage: 1200 MILLIGRAM, ONCE A DAY
     Route: 065
  5. DOLUTEGRAVIR [Suspect]
     Active Substance: DOLUTEGRAVIR
     Indication: HIV-2 infection
     Route: 065
  6. RITONAVIR [Suspect]
     Active Substance: RITONAVIR
     Indication: HIV-2 infection
     Dosage: 200 MILLIGRAM, ONCE A DAY
     Route: 065

REACTIONS (6)
  - Gene mutation [Unknown]
  - Pathogen resistance [Unknown]
  - Drug resistance [Unknown]
  - Acquired gene mutation [Unknown]
  - Treatment failure [Unknown]
  - Product use in unapproved indication [Unknown]
